FAERS Safety Report 24074171 (Version 1)
Quarter: 2024Q3

REPORT INFORMATION
  Report Type: Report from Study
  Country: CA (occurrence: CA)
  Receive Date: 20240710
  Receipt Date: 20240710
  Transmission Date: 20241016
  Serious: Yes (Other)
  Sender: BIOCON
  Company Number: CA-BIOCON BIOLOGICS LIMITED-BBL2024004891

PATIENT

DRUGS (1)
  1. HULIO [Suspect]
     Active Substance: ADALIMUMAB-FKJP
     Indication: Hidradenitis
     Dosage: 40 MILLIGRAM, QW (SOLUTION)
     Route: 058

REACTIONS (3)
  - Skin lesion [Unknown]
  - Hidradenitis [Unknown]
  - Condition aggravated [Unknown]
